FAERS Safety Report 5976260-2 (Version None)
Quarter: 2008Q4

REPORT INFORMATION
  Report Type: 
  Country: None (occurrence: None)
  Receive Date: 20081202
  Receipt Date: 20081125
  Transmission Date: 20090506
  Serious: Yes (Other)
  Sender: FDA-Public Use
  Company Number: US-ASTRAZENECA-2008UW26537

PATIENT
  Sex: Male

DRUGS (1)
  1. TOPROL-XL [Suspect]

REACTIONS (1)
  - CEREBROVASCULAR ACCIDENT [None]
